FAERS Safety Report 11624794 (Version 1)
Quarter: 2015Q4

REPORT INFORMATION
  Report Type: Spontaneous
  Country: NO (occurrence: NO)
  Receive Date: 20151013
  Receipt Date: 20151013
  Transmission Date: 20160304
  Serious: Yes (Hospitalization, Other)
  Sender: FDA-Public Use
  Company Number: NO-GLAXOSMITHKLINE-NO2015GSK142742

PATIENT
  Age: 24 Year
  Sex: Female

DRUGS (3)
  1. LAMICTAL [Suspect]
     Active Substance: LAMOTRIGINE
     Indication: PRODUCT USED FOR UNKNOWN INDICATION
     Dosage: UNK
     Dates: start: 20130830, end: 20131110
  2. SEROQUEL [Suspect]
     Active Substance: QUETIAPINE FUMARATE
     Indication: PRODUCT USED FOR UNKNOWN INDICATION
     Dosage: UNK
     Dates: end: 20131110
  3. CIPRALEX [Suspect]
     Active Substance: ESCITALOPRAM OXALATE
     Indication: PRODUCT USED FOR UNKNOWN INDICATION
     Dosage: UNK
     Dates: end: 20131110

REACTIONS (34)
  - Wound infection staphylococcal [Recovered/Resolved]
  - Acinetobacter bacteraemia [Recovered/Resolved]
  - Atrophy of globe [Recovered/Resolved]
  - Obstructive airways disorder [Recovered/Resolved]
  - Eye pain [Recovered/Resolved]
  - Sepsis [Recovering/Resolving]
  - Anxiety [Recovered/Resolved]
  - Photophobia [Not Recovered/Not Resolved]
  - Eyelid oedema [Recovered/Resolved]
  - Oral mucosal blistering [Unknown]
  - Toxic epidermal necrolysis [Recovered/Resolved]
  - Symblepharon [Recovered/Resolved with Sequelae]
  - Face oedema [Recovered/Resolved]
  - Eye oedema [Unknown]
  - Injury corneal [Unknown]
  - Dry eye [Unknown]
  - Blister [Recovered/Resolved]
  - Keratopathy [Recovered/Resolved with Sequelae]
  - Ulcer [Unknown]
  - Lens disorder [Unknown]
  - Oral pain [Recovered/Resolved]
  - Eye injury [Not Recovered/Not Resolved]
  - Staphylococcal bacteraemia [Recovered/Resolved]
  - Pyrexia [Recovered/Resolved]
  - Rash [Recovered/Resolved]
  - Generalised erythema [Unknown]
  - Vulvovaginal erythema [Unknown]
  - Tachycardia [Recovered/Resolved]
  - Skin exfoliation [Recovered/Resolved]
  - Stevens-Johnson syndrome [Recovered/Resolved]
  - Migraine [Recovered/Resolved]
  - Ocular hyperaemia [Recovered/Resolved]
  - Wound healing normal [Recovered/Resolved]
  - Mucous membrane disorder [Unknown]

NARRATIVE: CASE EVENT DATE: 201311
